FAERS Safety Report 12315028 (Version 3)
Quarter: 2016Q2

REPORT INFORMATION
  Report Type: Report from Study
  Country: SG (occurrence: SG)
  Receive Date: 20160428
  Receipt Date: 20160527
  Transmission Date: 20160815
  Serious: Yes (Death, Other)
  Sender: FDA-Public Use
  Company Number: SG-ALEXION-A201602952

PATIENT
  Age: 1 Month
  Sex: Male
  Weight: 2.8 kg

DRUGS (1)
  1. ENB-0040 [Suspect]
     Active Substance: ASFOTASE ALFA
     Indication: HYPOPHOSPHATASIA
     Dosage: 2 MG/KG, TIW (MON-WED-FRI)
     Route: 058
     Dates: start: 20160204, end: 20160408

REACTIONS (2)
  - Respiratory failure [Fatal]
  - Weight gain poor [Unknown]

NARRATIVE: CASE EVENT DATE: 20160311
